FAERS Safety Report 23592427 (Version 1)
Quarter: 2024Q1

REPORT INFORMATION
  Report Type: Report from Study
  Country: US (occurrence: US)
  Receive Date: 20240304
  Receipt Date: 20240304
  Transmission Date: 20240410
  Serious: No
  Sender: FDA-Public Use
  Company Number: US-drreddys-SPO/USA/23/0167988

PATIENT
  Age: 22 Year
  Sex: Female
  Weight: 95.12 kg

DRUGS (6)
  1. SAPROPTERIN DIHYDROCHLORIDE [Suspect]
     Active Substance: SAPROPTERIN DIHYDROCHLORIDE
     Indication: Phenylketonuria
     Route: 048
  2. SAPROPTERIN DIHYDROCHLORIDE [Suspect]
     Active Substance: SAPROPTERIN DIHYDROCHLORIDE
     Route: 048
  3. Ondansetron HCL 4 mg tablet [Concomitant]
     Indication: Product used for unknown indication
  4. ALBUTEROL SULFATE [Concomitant]
     Active Substance: ALBUTEROL SULFATE
     Indication: Product used for unknown indication
  5. prenatal 28mg-0.8mg tablet [Concomitant]
     Indication: Product used for unknown indication
     Dosage: PRENATAL 28MG-0.8MG TABLET
  6. Vitamin D-400 10 MCG Tablet [Concomitant]
     Indication: Product used for unknown indication

REACTIONS (4)
  - Vomiting [Unknown]
  - Decreased appetite [Unknown]
  - Drug ineffective [Unknown]
  - Product quality issue [Unknown]
